FAERS Safety Report 11123925 (Version 1)
Quarter: 2015Q2

REPORT INFORMATION
  Report Type: Spontaneous
  Country: US (occurrence: US)
  Receive Date: 20150520
  Receipt Date: 20150520
  Transmission Date: 20150821
  Serious: No
  Sender: FDA-Public Use
  Company Number: US-TEVA-503077USA

PATIENT
  Sex: Female
  Weight: 77.18 kg

DRUGS (1)
  1. OXAPROZIN. [Suspect]
     Active Substance: OXAPROZIN
     Dosage: 1200 MILLIGRAM DAILY;
     Route: 048
     Dates: start: 20140609, end: 201406

REACTIONS (1)
  - Drug ineffective [Unknown]
